FAERS Safety Report 8079880-7 (Version None)
Quarter: 2012Q1

REPORT INFORMATION
  Report Type: 
  Country: None (occurrence: None)
  Receive Date: 20120128
  Receipt Date: 20110722
  Transmission Date: 20120608
  Serious: No
  Sender: FDA-Public Use
  Company Number: US-ABBOTT-11P-163-0841075-00

PATIENT
  Sex: Male
  Weight: 96.248 kg

DRUGS (4)
  1. HUMIRA [Suspect]
     Indication: PSORIATIC ARTHROPATHY
     Route: 058
     Dates: start: 20110520
  2. HUMIRA [Suspect]
     Indication: PSORIASIS
  3. PETROLEUM JELLY [Concomitant]
     Indication: DRY SKIN
     Route: 061
  4. ULTRAM [Concomitant]
     Indication: PSORIATIC ARTHROPATHY
     Dosage: PRN
     Dates: start: 20100520

REACTIONS (2)
  - DIARRHOEA [None]
  - NAUSEA [None]
